FAERS Safety Report 8530071-2 (Version None)
Quarter: 2012Q3

REPORT INFORMATION
  Report Type: 
  Country: None (occurrence: None)
  Receive Date: 20120723
  Receipt Date: 20120718
  Transmission Date: 20120928
  Serious: Yes (Death)
  Sender: FDA-Public Use
  Company Number: PHHY2012EC020514

PATIENT
  Sex: Female

DRUGS (1)
  1. STALEVO 100 [Suspect]
     Indication: PARKINSON'S DISEASE
     Dosage: 200/50/12.5 MG, 1 TABLET TWICE A DAY
     Route: 048
     Dates: start: 20110719

REACTIONS (2)
  - DIZZINESS [None]
  - CARDIAC ARREST [None]
